FAERS Safety Report 17593418 (Version 1)
Quarter: 2020Q1

REPORT INFORMATION
  Report Type: Spontaneous
  Country: FR (occurrence: FR)
  Receive Date: 20200327
  Receipt Date: 20200327
  Transmission Date: 20200409
  Serious: Yes (Other)
  Sender: FDA-Public Use
  Company Number: FR-ASTRAZENECA-2020SE41784

PATIENT
  Age: 26615 Day
  Sex: Female

DRUGS (2)
  1. FASENRA [Suspect]
     Active Substance: BENRALIZUMAB
     Indication: ASTHMA
     Route: 058
  2. FASENRA [Suspect]
     Active Substance: BENRALIZUMAB
     Indication: ASTHMA
     Route: 058
     Dates: start: 20190718, end: 201910

REACTIONS (19)
  - Fatigue [Unknown]
  - Secretion discharge [Unknown]
  - Asthmatic crisis [Recovered/Resolved]
  - Purging [Unknown]
  - Pain in extremity [Unknown]
  - Pruritus [Unknown]
  - Chest pain [Unknown]
  - Blood gases abnormal [Unknown]
  - Hypocapnia [Unknown]
  - Erythema [Unknown]
  - Epilepsy [Unknown]
  - Wheezing [Unknown]
  - Dyspnoea [Not Recovered/Not Resolved]
  - Urticaria [Unknown]
  - Skin plaque [Unknown]
  - Temperature intolerance [Recovering/Resolving]
  - Anger [Unknown]
  - Gait disturbance [Unknown]
  - Initial insomnia [Not Recovered/Not Resolved]

NARRATIVE: CASE EVENT DATE: 20190718
